FAERS Safety Report 4634845-X (Version None)
Quarter: 2005Q2

REPORT INFORMATION
  Report Type: 
  Country: None (occurrence: None)
  Receive Date: 20050414
  Receipt Date: 20050404
  Transmission Date: 20051028
  Serious: Yes (Other)
  Sender: FDA-Public Use
  Company Number: US-JNJFOC-20050100763

PATIENT
  Sex: Male
  Weight: 65.77 kg

DRUGS (9)
  1. REMICADE [Suspect]
     Route: 042
  2. REMICADE [Suspect]
     Dosage: THIRD DOSE
     Route: 042
  3. REMICADE [Suspect]
     Indication: GRAFT VERSUS HOST DISEASE
     Route: 042
  4. RAPAMUNE [Concomitant]
     Indication: GRAFT VERSUS HOST DISEASE
  5. CELLCEPT [Concomitant]
     Indication: GRAFT VERSUS HOST DISEASE
  6. TACROLIMUS [Concomitant]
     Indication: GRAFT VERSUS HOST DISEASE
  7. PREDNISONE [Concomitant]
  8. ANTIFUNGAL [Concomitant]
  9. ANTIVIRAL [Concomitant]

REACTIONS (9)
  - BRAIN ABSCESS [None]
  - CONVULSION [None]
  - COORDINATION ABNORMAL [None]
  - DIPLOPIA [None]
  - HEMIPARESIS [None]
  - NERVOUS SYSTEM DISORDER [None]
  - NOCARDIOSIS [None]
  - OTITIS MEDIA [None]
  - STREPTOCOCCAL INFECTION [None]
